FAERS Safety Report 8094439-3 (Version None)
Quarter: 2012Q1

REPORT INFORMATION
  Report Type: 
  Country: None (occurrence: None)
  Receive Date: 20120130
  Receipt Date: 20120118
  Transmission Date: 20120608
  Serious: Yes (Hospitalization)
  Sender: FDA-Public Use
  Company Number: US-JNJFOC-20110811347

PATIENT
  Sex: Female
  Weight: 44.4 kg

DRUGS (7)
  1. PREDNISONE TAB [Concomitant]
  2. HUMIRA [Concomitant]
     Dates: start: 20100322
  3. MULTI-VITAMINS [Concomitant]
  4. CIMZIA [Concomitant]
     Dates: end: 20110524
  5. REMICADE [Suspect]
     Indication: INFLAMMATORY BOWEL DISEASE
     Route: 042
     Dates: start: 20041004, end: 20050603
  6. FISH OIL [Concomitant]
  7. MERCAPTOPURINE [Concomitant]

REACTIONS (1)
  - CROHN'S DISEASE [None]
